FAERS Safety Report 5048679-8 (Version None)
Quarter: 2006Q3

REPORT INFORMATION
  Report Type: 
  Country: None (occurrence: None)
  Receive Date: 20060712
  Receipt Date: 20060630
  Transmission Date: 20061208
  Serious: Yes (Hospitalization)
  Sender: FDA-Public Use
  Company Number: US-JNJFOC-20060700793

PATIENT
  Sex: Female
  Weight: 63.5 kg

DRUGS (14)
  1. FENTANYL TRANSDERMAL SYSTEM [Suspect]
     Indication: PAIN
     Route: 062
  2. ATIVAN [Concomitant]
     Indication: MUSCLE SPASMS
     Route: 048
  3. METHADONE HCL [Concomitant]
     Indication: PAIN
     Route: 048
  4. PENTASA [Concomitant]
     Indication: GASTRIC DISORDER
     Route: 048
  5. LASIX [Concomitant]
     Indication: FLUID RETENTION
     Route: 048
  6. COUMADIN [Concomitant]
     Indication: ANTICOAGULANT THERAPY
     Route: 048
  7. PLAQUENIL [Concomitant]
     Indication: SYSTEMIC LUPUS ERYTHEMATOSUS
     Route: 048
  8. PREVACID [Concomitant]
     Indication: HYPERCHLORHYDRIA
     Route: 048
  9. ZANAFLEX [Concomitant]
     Indication: MUSCLE SPASMS
     Route: 048
  10. K-DUR 10 [Concomitant]
     Indication: BLOOD POTASSIUM
     Route: 048
  11. LIDODERM [Concomitant]
     Indication: PAIN
     Route: 062
  12. TRAZODONE HCL [Concomitant]
     Indication: SLEEP DISORDER
     Route: 048
  13. TRAZODONE HCL [Concomitant]
     Indication: DEPRESSION
     Route: 048
  14. PHENERGAN HCL [Concomitant]
     Indication: NAUSEA
     Route: 048

REACTIONS (17)
  - ABDOMINAL PAIN [None]
  - ARTHRALGIA [None]
  - BLOOD POTASSIUM DECREASED [None]
  - DECREASED APPETITE [None]
  - DISORIENTATION [None]
  - DIZZINESS [None]
  - DUODENITIS [None]
  - DYSPNOEA [None]
  - FATIGUE [None]
  - HEADACHE [None]
  - MUSCLE SPASMS [None]
  - NAUSEA [None]
  - NEURALGIA [None]
  - OEDEMA PERIPHERAL [None]
  - PYREXIA [None]
  - VOMITING [None]
  - WEIGHT DECREASED [None]
